FAERS Safety Report 7859465-5 (Version None)
Quarter: 2011Q4

REPORT INFORMATION
  Report Type: 
  Country: None (occurrence: None)
  Receive Date: 20111026
  Receipt Date: 20111026
  Transmission Date: 20120403
  Serious: No
  Sender: FDA-Public Use
  Company Number: None

PATIENT
  Age: 63 Year
  Sex: Male
  Weight: 137.7 kg

DRUGS (1)
  1. VARENICLINE [Suspect]
     Indication: SMOKING CESSATION THERAPY
     Dosage: 0.5 MG EVERY DAY PO
     Route: 048
     Dates: start: 20100824, end: 20100923

REACTIONS (3)
  - IRRITABILITY [None]
  - AGITATION [None]
  - PERSONALITY CHANGE [None]
